FAERS Safety Report 8611666-4 (Version None)
Quarter: 2012Q3

REPORT INFORMATION
  Report Type: 
  Country: None (occurrence: None)
  Receive Date: 20120822
  Receipt Date: 20120816
  Transmission Date: 20120928
  Serious: No
  Sender: FDA-Public Use
  Company Number: US-PFIZER INC-2012184734

PATIENT
  Age: 84 Year
  Sex: Female
  Weight: 58.503 kg

DRUGS (7)
  1. LYRICA [Suspect]
     Indication: ARTHRITIS
  2. LYRICA [Suspect]
     Indication: PAIN
  3. BISMUTH SUBSALICYLATE [Concomitant]
     Indication: FLATULENCE
     Dosage: UNK
  4. NITROGLYCERIN [Concomitant]
     Dosage: UNK
  5. LYRICA [Suspect]
     Indication: FIBROMYALGIA
     Dosage: 100 MG, 4X/DAY
     Route: 048
     Dates: start: 20090101
  6. VICODIN [Concomitant]
     Indication: PAIN
     Dosage: 500/5 MG, UNK
  7. INSULIN [Concomitant]
     Indication: DIABETES MELLITUS
     Dosage: UNK

REACTIONS (7)
  - COUGH [None]
  - FATIGUE [None]
  - INSOMNIA [None]
  - SNEEZING [None]
  - FALL [None]
  - MALAISE [None]
  - HYPERHIDROSIS [None]
